FAERS Safety Report 9284744 (Version 1)
Quarter: 2013Q2

REPORT INFORMATION
  Report Type: Spontaneous
  Country: US (occurrence: US)
  Receive Date: 20130513
  Receipt Date: 20130513
  Transmission Date: 20140414
  Serious: No
  Sender: FDA-Public Use
  Company Number: US-BIOGENIDEC-2013BI024908

PATIENT
  Age: 54 Year
  Sex: Male

DRUGS (2)
  1. AVONEX [Suspect]
     Indication: MULTIPLE SCLEROSIS
     Route: 030
     Dates: start: 20100604, end: 20110718
  2. AVONEX [Suspect]
     Indication: MULTIPLE SCLEROSIS
     Route: 030
     Dates: start: 20111209

REACTIONS (10)
  - Nervousness [Not Recovered/Not Resolved]
  - Mobility decreased [Unknown]
  - Balance disorder [Not Recovered/Not Resolved]
  - Stress [Not Recovered/Not Resolved]
  - Musculoskeletal disorder [Not Recovered/Not Resolved]
  - Chills [Not Recovered/Not Resolved]
  - Dyspnoea exertional [Recovered/Resolved]
  - Rhinorrhoea [Recovered/Resolved]
  - Headache [Recovered/Resolved]
  - Malaise [Not Recovered/Not Resolved]
